FAERS Safety Report 4455769-7 (Version None)
Quarter: 2004Q3

REPORT INFORMATION
  Report Type: 
  Country: None (occurrence: None)
  Receive Date: 20040917
  Receipt Date: 20040907
  Transmission Date: 20050211
  Serious: Yes (Hospitalization)
  Sender: FDA-Public Use
  Company Number: 209041

PATIENT
  Age: 54 Year
  Sex: Female

DRUGS (3)
  1. HERCEPTIN [Suspect]
     Indication: BREAST CANCER METASTATIC
     Dosage: INTRAVENOUS
     Route: 042
     Dates: start: 20030901, end: 20040501
  2. FLUOROURACIL [Suspect]
     Indication: BREAST CANCER METASTATIC
     Dates: end: 20040528
  3. NAVELBINE [Suspect]
     Indication: BREAST CANCER METASTATIC
     Dates: end: 20040528

REACTIONS (9)
  - ANAEMIA [None]
  - ASPIRATION BONE MARROW ABNORMAL [None]
  - CARDIAC FAILURE [None]
  - GASTROINTESTINAL TOXICITY [None]
  - LEUKOPENIA [None]
  - PANCYTOPENIA [None]
  - PULMONARY ALVEOLAR HAEMORRHAGE [None]
  - PURULENCE [None]
  - RESPIRATORY DISORDER [None]
